FAERS Safety Report 4368276-7 (Version None)
Quarter: 2004Q2

REPORT INFORMATION
  Report Type: 
  Country: None (occurrence: None)
  Receive Date: 20040527
  Receipt Date: 20040519
  Transmission Date: 20050107
  Serious: Yes (Other)
  Sender: FDA-Public Use
  Company Number: THQ2004A00412

PATIENT
  Age: 68 Year
  Sex: Male

DRUGS (15)
  1. PIOGLITAZONE HCL [Suspect]
     Indication: DIABETES MELLITUS
     Dosage: 30 MG (1 D) PER ORAL
     Route: 048
     Dates: start: 20030509, end: 20040423
  2. NITROGLYCERIN [Concomitant]
  3. GLYBURIDE [Concomitant]
  4. ACETYLSALICYLIC ACID SRT [Concomitant]
  5. ISORDIL [Concomitant]
  6. ACEBUTOLOL [Concomitant]
  7. METFORMIN HCL [Concomitant]
  8. LOZIDE (INDAPAMIDE HEMIHYDRATE) [Concomitant]
  9. LIPITOR [Concomitant]
  10. RAMIPRIL [Concomitant]
  11. COUMADIN [Concomitant]
  12. NORVASC [Concomitant]
  13. EFFEXOR XR [Concomitant]
  14. PARIET (RABEPRAZOLE SODIUM) [Concomitant]
  15. NOVOLIN (INSULIN HUMAN INJECTION, ISOPHANE) [Concomitant]

REACTIONS (5)
  - DYSPNOEA [None]
  - OEDEMA PERIPHERAL [None]
  - PLEURAL EFFUSION [None]
  - PNEUMONIA [None]
  - PULMONARY OEDEMA [None]
